FAERS Safety Report 8420639-6 (Version None)
Quarter: 2012Q2

REPORT INFORMATION
  Report Type: 
  Country: None (occurrence: None)
  Receive Date: 20120608
  Receipt Date: 20120530
  Transmission Date: 20120825
  Serious: No
  Sender: FDA-Public Use
  Company Number: US-BIOGENIDEC-2012BI019490

PATIENT
  Age: 34 Year
  Sex: Female

DRUGS (1)
  1. TYSABRI [Suspect]
     Indication: MULTIPLE SCLEROSIS
     Route: 042
     Dates: start: 20091102

REACTIONS (7)
  - DYSPNOEA [None]
  - BACK PAIN [None]
  - ANXIETY [None]
  - PARAESTHESIA [None]
  - STRESS [None]
  - MUSCULOSKELETAL PAIN [None]
  - CENTRAL NERVOUS SYSTEM LESION [None]
